FAERS Safety Report 15335721 (Version 1)
Quarter: 2018Q3

REPORT INFORMATION
  Report Type: Spontaneous
  Country: US (occurrence: US)
  Receive Date: 20180827
  Receipt Date: 20180827
  Transmission Date: 20181010
  Serious: Yes (Disabling, Other)
  Sender: FDA-Public Use
  Company Number: None

PATIENT
  Age: 36 Year
  Sex: Male
  Weight: 90 kg

DRUGS (1)
  1. OXYCODONE ACETAMINOPHEN [Suspect]
     Active Substance: ACETAMINOPHEN\OXYCODONE HYDROCHLORIDE
     Indication: PROCEDURAL PAIN
     Route: 048
     Dates: start: 20180826, end: 20180827

REACTIONS (7)
  - Spinal pain [None]
  - Inadequate analgesia [None]
  - Product substitution issue [None]
  - Headache [None]
  - Nausea [None]
  - Hyperhidrosis [None]
  - Pain [None]

NARRATIVE: CASE EVENT DATE: 20180826
